FAERS Safety Report 8073601-X (Version None)
Quarter: 2012Q1

REPORT INFORMATION
  Report Type: 
  Country: None (occurrence: None)
  Receive Date: 20120126
  Receipt Date: 20120120
  Transmission Date: 20120608
  Serious: No
  Sender: FDA-Public Use
  Company Number: US-PFIZER INC-2012017351

PATIENT
  Sex: Female
  Weight: 61.2 kg

DRUGS (4)
  1. AMLODIPINE BESYLATE [Suspect]
     Indication: HYPERTENSION
     Dosage: 10 MG, DAILY
     Dates: start: 20111204
  2. MULTI-VITAMINS [Concomitant]
     Dosage: UNK, DAILY
  3. CALCIUM CARBONATE/ERGOCALCIFEROL [Concomitant]
     Dosage: UNK, DAILY
  4. FISH OIL [Concomitant]
     Dosage: UNK, DAILY

REACTIONS (3)
  - ARTHRALGIA [None]
  - FEELING HOT [None]
  - OEDEMA PERIPHERAL [None]
